FAERS Safety Report 9316175 (Version 1)
Quarter: 2013Q2

REPORT INFORMATION
  Report Type: Spontaneous
  Country: US (occurrence: None)
  Receive Date: 20130528
  Receipt Date: 20130528
  Transmission Date: 20140414
  Serious: Yes (Other)
  Sender: FDA-Public Use
  Company Number: None

PATIENT
  Age: 59 Year
  Sex: Female

DRUGS (1)
  1. TECFIDERA [Suspect]
     Route: 048
     Dates: start: 20130501, end: 20130520

REACTIONS (6)
  - Abdominal pain upper [None]
  - Nausea [None]
  - Flushing [None]
  - Diarrhoea [None]
  - Drug ineffective [None]
  - Irritable bowel syndrome [None]
